FAERS Safety Report 20104987 (Version 1)
Quarter: 2021Q4

REPORT INFORMATION
  Report Type: Spontaneous
  Country: CN (occurrence: CN)
  Receive Date: 20211124
  Receipt Date: 20211124
  Transmission Date: 20220303
  Serious: Yes (Other)
  Sender: FDA-Public Use
  Company Number: CN-009507513-2111CHN007089

PATIENT
  Age: 73 Year
  Sex: Male

DRUGS (1)
  1. CILASTATIN SODIUM\IMIPENEM [Suspect]
     Active Substance: CILASTATIN SODIUM\IMIPENEM
     Indication: Cholecystitis
     Dosage: 6 GRAM, QD
     Route: 041
     Dates: start: 20211116, end: 20211116

REACTIONS (3)
  - Delirium [Recovered/Resolved]
  - Overdose [Unknown]
  - Inappropriate schedule of product administration [Unknown]

NARRATIVE: CASE EVENT DATE: 20211116
